FAERS Safety Report 8080125-2 (Version None)
Quarter: 2012Q1

REPORT INFORMATION
  Report Type: 
  Country: None (occurrence: None)
  Receive Date: 20120129
  Receipt Date: 20111027
  Transmission Date: 20120608
  Serious: No
  Sender: FDA-Public Use
  Company Number: US-ABBOTT-11P-163-0869673-00

PATIENT
  Sex: Female

DRUGS (12)
  1. HUMIRA [Suspect]
     Indication: RHEUMATOID ARTHRITIS
     Route: 058
     Dates: start: 20110601, end: 20110801
  2. ENALAPRIL [Concomitant]
     Indication: HYPERTENSION
  3. ACETAMINOPHEN [Concomitant]
     Indication: PRODUCT USED FOR UNKNOWN INDICATION
  4. METHOTREXATE [Concomitant]
     Indication: RHEUMATOID ARTHRITIS
     Dosage: 6 TABS ON FRIDAY.
  5. FOLIC ACID [Concomitant]
     Indication: RHEUMATOID ARTHRITIS
  6. HYDROCHLOROTHIAZIDE [Concomitant]
     Indication: HYPERTENSION
  7. VITAMIN D [Concomitant]
     Indication: SUPPLEMENTATION THERAPY
  8. MULTI-VITAMIN [Concomitant]
     Indication: VITAMIN SUPPLEMENTATION
  9. OMEPRAZOLE [Concomitant]
     Indication: GASTROOESOPHAGEAL REFLUX DISEASE
  10. SALSALATE [Concomitant]
     Indication: RHEUMATOID ARTHRITIS
  11. ASCORBIC ACID [Concomitant]
     Indication: VITAMIN SUPPLEMENTATION
  12. AMLODIPINE [Concomitant]
     Indication: HYPERTENSION

REACTIONS (2)
  - PRURITUS [None]
  - URTICARIA [None]
